FAERS Safety Report 5523507-2 (Version None)
Quarter: 2007Q4

REPORT INFORMATION
  Report Type: 
  Country: None (occurrence: None)
  Receive Date: 20071121
  Receipt Date: 20071115
  Transmission Date: 20080405
  Serious: Yes (Other)
  Sender: FDA-Public Use
  Company Number: GB-JNJFOC-20070901203

PATIENT
  Sex: Female

DRUGS (1)
  1. ORTHO EVRA [Suspect]
     Indication: CONTRACEPTION
     Route: 062

REACTIONS (5)
  - APPLICATION SITE RASH [None]
  - CHEST PAIN [None]
  - DEPRESSION [None]
  - METRORRHAGIA [None]
  - MIGRAINE [None]
